FAERS Safety Report 13515454 (Version 1)
Quarter: 2017Q2

REPORT INFORMATION
  Report Type: Spontaneous
  Country: PE (occurrence: PE)
  Receive Date: 20170504
  Receipt Date: 20170504
  Transmission Date: 20170830
  Serious: Yes (Other)
  Sender: FDA-Public Use
  Company Number: PE-PFIZER INC-2017191623

PATIENT
  Sex: Female

DRUGS (1)
  1. AROMASIN [Suspect]
     Active Substance: EXEMESTANE
     Indication: NEOPLASM MALIGNANT
     Dosage: UNK
     Dates: start: 201607

REACTIONS (9)
  - Blindness [Unknown]
  - Hyperhidrosis [Unknown]
  - Osteoporosis [Unknown]
  - Hypotension [Unknown]
  - Pneumonitis [Unknown]
  - Anxiety [Unknown]
  - Skin wound [Recovering/Resolving]
  - Bronchospasm [Unknown]
  - Depression [Unknown]
